FAERS Safety Report 5106455-1 (Version None)
Quarter: 2006Q3

REPORT INFORMATION
  Report Type: 
  Country: None (occurrence: None)
  Receive Date: 20060912
  Receipt Date: 20060829
  Transmission Date: 20061208
  Serious: Yes (Death)
  Sender: FDA-Public Use
  Company Number: DAV-AE-MTX-06-001

PATIENT
  Age: 66 Year
  Sex: Female

DRUGS (6)
  1. METHOTREXATE [Suspect]
     Indication: RHEUMATOID ARTHRITIS
     Dosage: 20 MG - 1XW - PO
     Route: 048
     Dates: start: 20040101, end: 20060531
  2. LEFLUNOMIDE [Suspect]
     Indication: RHEUMATOID ARTHRITIS
     Dosage: 10 MG - QD - PO
     Route: 048
     Dates: start: 20060301, end: 20060531
  3. PARACETAMOL [Concomitant]
  4. ETORICOXIB [Concomitant]
  5. FOLIC ACID [Concomitant]
  6. OMEPRAZOLE [Concomitant]

REACTIONS (1)
  - PULMONARY FIBROSIS [None]
